FAERS Safety Report 8457017-X (Version None)
Quarter: 2012Q2

REPORT INFORMATION
  Report Type: 
  Country: None (occurrence: None)
  Receive Date: 20120621
  Receipt Date: 20120612
  Transmission Date: 20120825
  Serious: Yes (Hospitalization, Other)
  Sender: FDA-Public Use
  Company Number: JP-ASTRAZENECA-2012SE39841

PATIENT
  Age: 75 Year
  Sex: Female

DRUGS (7)
  1. MAGMITT [Concomitant]
     Dosage: DOSE UNKNOWN
     Route: 065
  2. RIKKUNSHITO [Concomitant]
     Dosage: DOSE UNKNOWN
     Route: 065
  3. NEXIUM [Suspect]
     Indication: GASTROOESOPHAGEAL REFLUX DISEASE
     Route: 048
     Dates: start: 20111012, end: 20120612
  4. TRANDOLAPRIL [Concomitant]
     Dosage: DOSE UNKNOWN
     Route: 065
  5. HALCION [Concomitant]
     Dosage: DOSE UNKNOWN
     Route: 065
  6. TRICHLORMETHIAZIDE [Concomitant]
     Dosage: ALTERNATE-DAY
     Route: 048
     Dates: start: 20110111, end: 20120403
  7. RHEUMATREX [Concomitant]
     Dosage: DOSE UNKNOWN
     Route: 065

REACTIONS (3)
  - LOSS OF CONSCIOUSNESS [None]
  - FAECAL INCONTINENCE [None]
  - HYPONATRAEMIA [None]
